FAERS Safety Report 4579604-1 (Version None)
Quarter: 2005Q1

REPORT INFORMATION
  Report Type: 
  Country: None (occurrence: None)
  Receive Date: 20050210
  Receipt Date: 20050126
  Transmission Date: 20050727
  Serious: Yes (Death)
  Sender: FDA-Public Use
  Company Number: 2004AL000536

PATIENT
  Age: 42 Year
  Sex: 0

DRUGS (3)
  1. DIAZEPAM [Suspect]
     Dosage: PO
     Route: 048
  2. METHADONE HCL [Suspect]
     Dosage: PO
     Route: 048
  3. COCAINE [Suspect]
     Dosage: IV
     Route: 042

REACTIONS (4)
  - ACCIDENTAL OVERDOSE [None]
  - CARDIO-RESPIRATORY ARREST [None]
  - COMA [None]
  - DRUG ABUSER [None]
